FAERS Safety Report 5714082-8 (Version None)
Quarter: 2008Q2

REPORT INFORMATION
  Report Type: 
  Country: None (occurrence: None)
  Receive Date: 20080423
  Receipt Date: 20080410
  Transmission Date: 20081010
  Serious: Yes (Hospitalization, Other)
  Sender: FDA-Public Use
  Company Number: DE-BAYER-200813823GPV

PATIENT
  Age: 38 Year
  Sex: Female
  Weight: 62 kg

DRUGS (1)
  1. MIRENA [Suspect]
     Indication: CONTRACEPTION
     Dosage: TOTAL DAILY DOSE: 20 ?G
     Route: 015
     Dates: start: 20071206, end: 20080208

REACTIONS (7)
  - ACNE [None]
  - FIBRIN D DIMER INCREASED [None]
  - HEADACHE [None]
  - HEMIANOPIA [None]
  - MALAISE [None]
  - NIGHT SWEATS [None]
  - WEIGHT INCREASED [None]
